FAERS Safety Report 9686011 (Version 2)
Quarter: 2013Q4

REPORT INFORMATION
  Report Type: Spontaneous
  Country: US (occurrence: US)
  Receive Date: 20131113
  Receipt Date: 20131113
  Transmission Date: 20140711
  Serious: No
  Sender: FDA-Public Use
  Company Number: US-ALLERGAN-1302786US

PATIENT
  Sex: Male

DRUGS (2)
  1. COMBIGAN[R] [Suspect]
     Indication: PRODUCT USED FOR UNKNOWN INDICATION
     Dosage: 2 GTT, UNK
     Dates: start: 2012
  2. DIOVAN HCT [Concomitant]
     Indication: HYPERTENSION

REACTIONS (1)
  - Intraocular pressure increased [Unknown]
